FAERS Safety Report 19065720 (Version 2)
Quarter: 2021Q2

REPORT INFORMATION
  Report Type: Spontaneous
  Country: BR (occurrence: BR)
  Receive Date: 20210327
  Receipt Date: 20210527
  Transmission Date: 20210717
  Serious: Yes (Other)
  Sender: FDA-Public Use
  Company Number: BR-UCBSA-2021013711

PATIENT
  Age: 21 Year
  Sex: Female
  Weight: 38 kg

DRUGS (5)
  1. LEVETIRACETAM. [Concomitant]
     Active Substance: LEVETIRACETAM
     Indication: SEIZURE
     Dosage: UNK
     Dates: start: 20210101, end: 20210317
  2. LAMOTRIGINA [Concomitant]
     Active Substance: LAMOTRIGINE
     Indication: SEIZURE
     Dosage: 125 MILLIGRAM, 2X/DAY (BID)
     Route: 048
     Dates: start: 2015
  3. CLOBAZAM. [Concomitant]
     Active Substance: CLOBAZAM
     Indication: EPILEPSY
     Dosage: UNK
     Route: 048
     Dates: start: 2015
  4. LAMOTRIGINA [Concomitant]
     Active Substance: LAMOTRIGINE
     Indication: EPILEPSY
  5. KEPPRA [Suspect]
     Active Substance: LEVETIRACETAM
     Indication: SEIZURE
     Dosage: 100 MILLIGRAM, 2X/DAY (BID)
     Route: 048

REACTIONS (2)
  - Seizure [Recovered/Resolved]
  - Inability to afford medication [Unknown]

NARRATIVE: CASE EVENT DATE: 2021
